FAERS Safety Report 7416929-6 (Version None)
Quarter: 2011Q2

REPORT INFORMATION
  Report Type: 
  Country: None (occurrence: None)
  Receive Date: 20110415
  Receipt Date: 20110405
  Transmission Date: 20111010
  Serious: Yes (Hospitalization)
  Sender: FDA-Public Use
  Company Number: US-ABBOTT-98P-163-0519468-00

PATIENT
  Age: 45 Year
  Sex: Female

DRUGS (1)
  1. LEUPLIN FOR INJECTION 3.75 MG [Suspect]
     Indication: UTERINE LEIOMYOMA
     Route: 030

REACTIONS (1)
  - SARCOMA [None]
